FAERS Safety Report 20554845 (Version 1)
Quarter: 2022Q1

REPORT INFORMATION
  Report Type: Spontaneous
  Country: KR (occurrence: KR)
  Receive Date: 20220304
  Receipt Date: 20220304
  Transmission Date: 20220423
  Serious: Yes (Other)
  Sender: FDA-Public Use
  Company Number: KR-009507513-2203KOR001153

PATIENT
  Age: 29 Year
  Sex: Female
  Weight: 56.5 kg

DRUGS (6)
  1. PREVYMIS [Suspect]
     Active Substance: LETERMOVIR
     Indication: Antiviral prophylaxis
     Dosage: 480 MG, ONCE DAILY
     Route: 048
     Dates: start: 20210831, end: 20211208
  2. PENIRAMIN [Concomitant]
     Indication: Prophylaxis
     Dosage: 1 AMPLE
     Route: 042
     Dates: start: 20210831
  3. CORTISOL [HYDROCORTISONE SODIUM SUCCINATE] [Concomitant]
     Indication: Prophylaxis
     Dosage: 200 MILLIGRAM, QD
     Route: 042
     Dates: start: 20210831
  4. GLOBULIN [Concomitant]
     Indication: Prophylaxis
     Dosage: 25 GRAM, QD
     Route: 042
     Dates: start: 20210914
  5. PREDNISOLONE [Concomitant]
     Active Substance: PREDNISOLONE
     Indication: Prophylaxis
     Dosage: 20 MILLIGRAM, QD
     Route: 048
     Dates: start: 20211110, end: 20211221
  6. PANTOPRAZOLE SODIUM [Concomitant]
     Active Substance: PANTOPRAZOLE SODIUM
     Indication: Prophylaxis
     Dosage: 1 TAB, QD
     Route: 048
     Dates: start: 20211110, end: 20211221

REACTIONS (2)
  - Cytomegalovirus infection [Unknown]
  - Drug ineffective [Unknown]

NARRATIVE: CASE EVENT DATE: 20211230
